FAERS Safety Report 17259736 (Version 1)
Quarter: 2020Q1

REPORT INFORMATION
  Report Type: Spontaneous
  Country: FR (occurrence: FR)
  Receive Date: 20200110
  Receipt Date: 20200110
  Transmission Date: 20200409
  Serious: Yes (Other)
  Sender: FDA-Public Use
  Company Number: FR-AUROBINDO-AUR-APL-2020-002052

PATIENT
  Age: 68 Year
  Sex: Female
  Weight: 58 kg

DRUGS (2)
  1. LAROXYL [Suspect]
     Active Substance: AMITRIPTYLINE HYDROCHLORIDE
     Indication: NEURALGIA
     Dosage: 32.5 MILLIGRAM, ONCE A DAY
     Route: 048
     Dates: start: 201909, end: 20191210
  2. GABAPENTIN. [Suspect]
     Active Substance: GABAPENTIN
     Indication: NEURALGIA
     Dosage: 900 MILLIGRAM, ONCE A DAY
     Route: 048
     Dates: start: 201909, end: 201912

REACTIONS (1)
  - Neutropenia [Recovered/Resolved]

NARRATIVE: CASE EVENT DATE: 20191205
